FAERS Safety Report 12863526 (Version 1)
Quarter: 2016Q4

REPORT INFORMATION
  Report Type: Spontaneous
  Country: US (occurrence: US)
  Receive Date: 20161019
  Receipt Date: 20161019
  Transmission Date: 20170207
  Serious: Yes (Other)
  Sender: FDA-Public Use
  Company Number: US-OTSUKA-2016_021709AA

PATIENT
  Sex: Male

DRUGS (1)
  1. REXULTI [Suspect]
     Active Substance: BREXPIPRAZOLE
     Indication: SCHIZOAFFECTIVE DISORDER
     Dosage: 0.5 MG, UNK
     Route: 065
     Dates: start: 20160906

REACTIONS (2)
  - Off label use [Unknown]
  - Dysphagia [Unknown]

NARRATIVE: CASE EVENT DATE: 20160906
